FAERS Safety Report 5571111-2 (Version None)
Quarter: 2007Q4

REPORT INFORMATION
  Report Type: 
  Country: None (occurrence: None)
  Receive Date: 20071221
  Receipt Date: 20071211
  Transmission Date: 20080405
  Serious: Yes (Hospitalization)
  Sender: FDA-Public Use
  Company Number: JP-MERCK-0712USA07980

PATIENT
  Age: 16 Year

DRUGS (1)
  1. MAXALT [Suspect]
     Indication: MIGRAINE
     Route: 048

REACTIONS (2)
  - CONVULSION [None]
  - LOSS OF CONSCIOUSNESS [None]
